FAERS Safety Report 8358223-5 (Version None)
Quarter: 2012Q2

REPORT INFORMATION
  Report Type: 
  Country: None (occurrence: None)
  Receive Date: 20120514
  Receipt Date: 20120507
  Transmission Date: 20120825
  Serious: Yes (Hospitalization)
  Sender: FDA-Public Use
  Company Number: NL-GLAXOSMITHKLINE-B0791544C

PATIENT
  Sex: Female

DRUGS (6)
  1. PAZOPANIB [Suspect]
     Indication: NEOPLASM MALIGNANT
     Route: 048
     Dates: start: 20120220
  2. DEXAMETHASONE SODIUM PHOSPHATE [Concomitant]
     Route: 048
     Dates: start: 20120314
  3. DOCETAXEL [Suspect]
     Indication: NEOPLASM MALIGNANT
     Route: 042
     Dates: start: 20120306
  4. LOPERAMIDE [Concomitant]
     Dosage: 2MG PER DAY
     Route: 048
     Dates: start: 20120417
  5. MOVICOLON [Concomitant]
     Dosage: 1SAC PER DAY
     Route: 048
     Dates: start: 20120307
  6. METOCLOPRAMIDE [Concomitant]
     Route: 048

REACTIONS (2)
  - PYREXIA [None]
  - HEPATIC ENZYME ABNORMAL [None]
